FAERS Safety Report 6407948-7 (Version None)
Quarter: 2009Q4

REPORT INFORMATION
  Report Type: 
  Country: None (occurrence: None)
  Receive Date: 20091015
  Receipt Date: 20091001
  Transmission Date: 20100525
  Serious: Yes (Death)
  Sender: FDA-Public Use
  Company Number: F03200900118

PATIENT
  Age: 72 Year
  Sex: Male

DRUGS (25)
  1. FLUDARABINE PHOSPHATE [Suspect]
     Indication: NON-HODGKIN'S LYMPHOMA UNSPECIFIED HISTOLOGY INDOLENT STAGE IV
     Dosage: 50 MG QD ORAL
     Route: 048
     Dates: start: 20080410, end: 20090411
  2. PREDNISOLONE [Concomitant]
  3. BARACLUDE [Concomitant]
  4. RABEPRAZOLE SODIUM [Concomitant]
  5. MAGMITT (MAGNESIUM OXIDE) [Concomitant]
  6. WARFARIN SODIUM [Concomitant]
  7. PURSENNID (SENNA LEAF) [Concomitant]
  8. NASEA (RAMOSETRON HYDROCHLORIDE) [Concomitant]
  9. SOLDEM 3A [Concomitant]
  10. AMIGRAND [Concomitant]
  11. OMEPRAZOLE [Concomitant]
  12. SOLACET D [Concomitant]
  13. KN 1A [Concomitant]
  14. KAYTWON (MENATETRENONE) [Concomitant]
  15. NEOPAREN 1 [Concomitant]
  16. NEOPAREN 2 [Concomitant]
  17. INTRAFAT [Concomitant]
  18. VINCRISTINE SULFATE [Concomitant]
  19. DOXORUBICIN HCL [Concomitant]
  20. DEXAMETHASONE TAB [Concomitant]
  21. MELPHALAN (MELPHALAN) [Concomitant]
  22. PREDNISOLONE [Concomitant]
  23. CYCLOPHOSPHAMIDE [Concomitant]
  24. CONCENTRATED RED CELLS (RED BLOOD CELLS, CONCENTRATED) [Concomitant]
  25. PLATELET CONCETRATE (DIPYRIDAMOLE) [Concomitant]

REACTIONS (10)
  - ANAEMIA [None]
  - C-REACTIVE PROTEIN INCREASED [None]
  - CONDITION AGGRAVATED [None]
  - HAEMATOCRIT DECREASED [None]
  - HEPATIC ENZYME ABNORMAL [None]
  - HYPONATRAEMIA [None]
  - MALIGNANT NEOPLASM PROGRESSION [None]
  - NAUSEA [None]
  - NON-HODGKIN'S LYMPHOMA [None]
  - PLATELET COUNT DECREASED [None]
